FAERS Safety Report 12633075 (Version 2)
Quarter: 2016Q3

REPORT INFORMATION
  Report Type: Spontaneous
  Country: US (occurrence: US)
  Receive Date: 20160808
  Receipt Date: 20160808
  Transmission Date: 20161109
  Serious: No
  Sender: FDA-Public Use
  Company Number: US-BEH-2016058382

PATIENT
  Sex: Female
  Weight: 54 kg

DRUGS (36)
  1. FLONASE [Concomitant]
     Active Substance: FLUTICASONE PROPIONATE
  2. LEVOXYL [Concomitant]
     Active Substance: LEVOTHYROXINE SODIUM
  3. AZITHROMYCIN ANHYDROUS. [Concomitant]
     Active Substance: AZITHROMYCIN ANHYDROUS
  4. AFRIN [Concomitant]
     Active Substance: OXYMETAZOLINE
  5. OMEPRAZOLE. [Concomitant]
     Active Substance: OMEPRAZOLE
  6. ACETAMINOPHEN. [Concomitant]
     Active Substance: ACETAMINOPHEN
  7. PRYRIDIUM [Concomitant]
  8. PHENAZOPYRINDINE [Concomitant]
  9. PRELIEF [Concomitant]
     Active Substance: CALCIUM GLYCEROPHOSPHATE
  10. HIZENTRA [Suspect]
     Active Substance: HUMAN IMMUNOGLOBULIN G
     Indication: IMMUNODEFICIENCY COMMON VARIABLE
     Route: 058
  11. HIZENTRA [Suspect]
     Active Substance: HUMAN IMMUNOGLOBULIN G
     Route: 058
  12. HIZENTRA [Suspect]
     Active Substance: HUMAN IMMUNOGLOBULIN G
     Dates: start: 20100823
  13. DIFULCAN [Concomitant]
  14. ZYRTEC [Concomitant]
     Active Substance: CETIRIZINE HYDROCHLORIDE
  15. MAGNESIUM [Concomitant]
     Active Substance: MAGNESIUM
  16. CIPRO [Concomitant]
     Active Substance: CIPROFLOXACIN HYDROCHLORIDE
  17. MONTELUKAST [Concomitant]
     Active Substance: MONTELUKAST SODIUM
  18. VITAMIN D [Concomitant]
     Active Substance: CHOLECALCIFEROL
  19. LIBRAX [Concomitant]
     Active Substance: CHLORDIAZEPOXIDE HYDROCHLORIDE\CLIDINIUM BROMIDE
  20. SUCRALFATE. [Concomitant]
     Active Substance: SUCRALFATE
  21. SIMBRINZA [Concomitant]
     Active Substance: BRIMONIDINE TARTRATE\BRINZOLAMIDE
  22. PROAIR HFA [Concomitant]
     Active Substance: ALBUTEROL SULFATE
  23. KEFLEX [Concomitant]
     Active Substance: CEPHALEXIN
  24. MULTIVITAMIN [Concomitant]
     Active Substance: VITAMINS
  25. COLACE [Concomitant]
     Active Substance: DOCUSATE SODIUM
  26. BENZONATE [Concomitant]
     Active Substance: BENZONATATE
  27. DIPHENHYDRAMINE. [Concomitant]
     Active Substance: DIPHENHYDRAMINE
  28. MUCUS RELIEF [Concomitant]
     Active Substance: GUAIFENESIN
  29. ALBUTEROL. [Concomitant]
     Active Substance: ALBUTEROL
  30. ADVAIR HFA [Concomitant]
     Active Substance: FLUTICASONE PROPIONATE\SALMETEROL XINAFOATE
  31. LORATADINR [Concomitant]
  32. EPIPEN [Concomitant]
     Active Substance: EPINEPHRINE
  33. MEDROL [Concomitant]
     Active Substance: METHYLPREDNISOLONE
  34. DUONEB [Concomitant]
     Active Substance: ALBUTEROL SULFATE\IPRATROPIUM BROMIDE
  35. RANITIDINE. [Concomitant]
     Active Substance: RANITIDINE
  36. ATIVIAN [Concomitant]

REACTIONS (2)
  - Dysgeusia [Unknown]
  - Swollen tongue [Unknown]
